FAERS Safety Report 24751069 (Version 2)
Quarter: 2024Q4

REPORT INFORMATION
  Report Type: Spontaneous
  Country: CN (occurrence: None)
  Receive Date: 20241219
  Receipt Date: 20241220
  Transmission Date: 20250115
  Serious: Yes (Hospitalization)
  Sender: ORION
  Company Number: CN-Orion Corporation ORION PHARMA-ENT 2024-0061

PATIENT
  Age: 81 Year
  Sex: Female
  Weight: 67 kg

DRUGS (1)
  1. ENTACAPONE [Suspect]
     Active Substance: ENTACAPONE
     Indication: Parkinson^s disease
     Dates: start: 20241206, end: 20241210

REACTIONS (3)
  - Blood creatine phosphokinase abnormal [Recovering/Resolving]
  - Asthenia [Recovering/Resolving]
  - Pain [Recovering/Resolving]

NARRATIVE: CASE EVENT DATE: 20241210
